FAERS Safety Report 6051473-2 (Version None)
Quarter: 2009Q1

REPORT INFORMATION
  Report Type: 
  Country: None (occurrence: None)
  Receive Date: 20090126
  Receipt Date: 20090116
  Transmission Date: 20090719
  Serious: Yes (Hospitalization)
  Sender: FDA-Public Use
  Company Number: A0753095A

PATIENT
  Age: 19 Year
  Sex: Female
  Weight: 95 kg

DRUGS (2)
  1. ELTROMBOPAG [Suspect]
     Indication: IDIOPATHIC THROMBOCYTOPENIC PURPURA
     Dosage: 50MG PER DAY
     Route: 048
     Dates: start: 20071129, end: 20080822
  2. PANTOPRAZOLE SODIUM [Concomitant]
     Indication: GASTRITIS
     Dosage: 40MG TWICE PER DAY
     Route: 048
     Dates: start: 20080910

REACTIONS (2)
  - HAEMATEMESIS [None]
  - PETECHIAE [None]
